FAERS Safety Report 23095642 (Version 1)
Quarter: 2023Q4

REPORT INFORMATION
  Report Type: Spontaneous
  Country: US (occurrence: None)
  Receive Date: 20231019
  Receipt Date: 20231019
  Transmission Date: 20240109
  Serious: Yes (Hospitalization)
  Sender: FDA-Public Use
  Company Number: None

PATIENT
  Age: 56 Year
  Sex: Male

DRUGS (1)
  1. GENGRAF [Suspect]
     Active Substance: CYCLOSPORINE
     Dosage: FREQUENCY : TWICE A DAY;?
     Route: 048
     Dates: start: 20220826, end: 20221229

REACTIONS (3)
  - Nausea [None]
  - Vomiting [None]
  - Therapy cessation [None]

NARRATIVE: CASE EVENT DATE: 20221229
